FAERS Safety Report 20877781 (Version 3)
Quarter: 2022Q3

REPORT INFORMATION
  Report Type: Spontaneous
  Country: IL (occurrence: IL)
  Receive Date: 20220526
  Receipt Date: 20220803
  Transmission Date: 20221026
  Serious: No
  Sender: FDA-Public Use
  Company Number: IL-PFIZER INC-202200678052

PATIENT
  Age: 2 Year
  Sex: Male

DRUGS (2)
  1. GENOTROPIN [Suspect]
     Active Substance: SOMATROPIN
     Dosage: UNK
     Route: 058
  2. GENOTROPIN [Suspect]
     Active Substance: SOMATROPIN
     Dosage: UNK, 1X/DAY
     Route: 058

REACTIONS (3)
  - Device physical property issue [Unknown]
  - Device leakage [Unknown]
  - Drug dose omission by device [Unknown]
